FAERS Safety Report 19205728 (Version 2)
Quarter: 2021Q3

REPORT INFORMATION
  Report Type: Spontaneous
  Country: US (occurrence: US)
  Receive Date: 20210503
  Receipt Date: 20210908
  Transmission Date: 20211014
  Serious: No
  Sender: FDA-Public Use
  Company Number: US-FARMAPROD-202102-0270

PATIENT
  Sex: Female
  Weight: 77.18 kg

DRUGS (16)
  1. VITAMIN E [Concomitant]
     Active Substance: .ALPHA.-TOCOPHEROL
  2. VITAMIN D2 [Concomitant]
     Active Substance: ERGOCALCIFEROL
  3. CINNAMON. [Concomitant]
     Active Substance: CINNAMON
  4. ESCITALOPRAM OXALATE. [Concomitant]
     Active Substance: ESCITALOPRAM OXALATE
  5. IRON [Concomitant]
     Active Substance: IRON
     Dosage: 159 (45) MG EXTENDED RELEASE TABLET
  6. BIOTIN [Concomitant]
     Active Substance: BIOTIN
  7. UBIQUINOL [Concomitant]
     Active Substance: UBIQUINOL
  8. VAGIFEM [Concomitant]
     Active Substance: ESTRADIOL
  9. ATORVASTATIN CALCIUM. [Concomitant]
     Active Substance: ATORVASTATIN CALCIUM
  10. OXERVATE [Suspect]
     Active Substance: CENEGERMIN-BKBJ
     Indication: NEUROTROPHIC KERATOPATHY
     Route: 047
     Dates: start: 20210215, end: 20210412
  11. VITAMINE C [Concomitant]
     Active Substance: ASCORBIC ACID
  12. VITAMINE B1 [Concomitant]
     Active Substance: THIAMINE HYDROCHLORIDE
  13. ASPIRIN. [Concomitant]
     Active Substance: ASPIRIN
  14. ALLEGRA D?12 HOUR [Concomitant]
     Active Substance: FEXOFENADINE HYDROCHLORIDE\PSEUDOEPHEDRINE HYDROCHLORIDE
  15. VITAMIN K [Concomitant]
     Active Substance: PHYTONADIONE
  16. ZINC. [Concomitant]
     Active Substance: ZINC

REACTIONS (3)
  - Vision blurred [Not Recovered/Not Resolved]
  - Photophobia [Unknown]
  - Eye pain [Unknown]
